FAERS Safety Report 9787887 (Version 2)
Quarter: 2013Q4

REPORT INFORMATION
  Report Type: Spontaneous
  Country: US (occurrence: US)
  Receive Date: 20131230
  Receipt Date: 20131230
  Transmission Date: 20140711
  Serious: Yes (Disabling)
  Sender: FDA-Public Use
  Company Number: US-GE HEALTHCARE MEDICAL DIAGNOSTICS-OSCN-PR-0905S-0261

PATIENT
  Age: 62 Year
  Sex: Female

DRUGS (8)
  1. OMNISCAN [Suspect]
     Indication: PRODUCT USED FOR UNKNOWN INDICATION
     Dates: start: 20030807, end: 20030807
  2. GADOLINIUM (UNSPECIFIED) [Suspect]
     Indication: PRODUCT USED FOR UNKNOWN INDICATION
     Dates: start: 20020101, end: 20020101
  3. GADOLINIUM (UNSPECIFIED) [Suspect]
     Dates: start: 20030601, end: 20030601
  4. GADOLINIUM (UNSPECIFIED) [Suspect]
     Dates: start: 20030701, end: 20030701
  5. GADOLINIUM (UNSPECIFIED) [Suspect]
     Dates: start: 20030801, end: 20030801
  6. GADOLINIUM (UNSPECIFIED) [Suspect]
     Dates: start: 20030901, end: 20030901
  7. GADOLINIUM (UNSPECIFIED) [Suspect]
     Dates: start: 20031001, end: 20031001
  8. MAGNEVIST [Suspect]
     Indication: PRODUCT USED FOR UNKNOWN INDICATION
     Dates: start: 20020129, end: 20020129

REACTIONS (1)
  - Nephrogenic systemic fibrosis [Not Recovered/Not Resolved]
